FAERS Safety Report 5609471-6 (Version None)
Quarter: 2008Q1

REPORT INFORMATION
  Report Type: 
  Country: None (occurrence: None)
  Receive Date: 20080131
  Receipt Date: 20080125
  Transmission Date: 20080703
  Serious: Yes (Other)
  Sender: FDA-Public Use
  Company Number: JP-AVENTIS-200810867GDDC

PATIENT
  Age: 46 Year
  Sex: Female

DRUGS (5)
  1. ISONIAZID [Suspect]
     Indication: TUBERCULOSIS
  2. RIFADIN [Suspect]
  3. PYRAMIDE [Suspect]
     Indication: TUBERCULOSIS
  4. STREPTOMYCIN [Suspect]
     Indication: TUBERCULOSIS
  5. ETHAMBUTOL HYDROCHLORIDE [Concomitant]
     Indication: TUBERCULOSIS

REACTIONS (1)
  - NEUROPATHY PERIPHERAL [None]
